FAERS Safety Report 8886699 (Version 2)
Quarter: 2012Q4

REPORT INFORMATION
  Report Type: 
  Country: JP (occurrence: JP)
  Receive Date: 20121105
  Receipt Date: 20121210
  Transmission Date: 20130627
  Serious: Yes (Other)
  Sender: FDA-Public Use
  Company Number: PHHY2012JP081915

PATIENT
  Age: 77 Year
  Weight: 67 kg

DRUGS (7)
  1. EXFORGE [Suspect]
     Indication: HYPERTENSION
     Dosage: 1 DF, daily
     Route: 048
     Dates: start: 20120526, end: 20120910
  2. PURSENNID [Concomitant]
     Indication: HYPERTENSION
     Dosage: 36 mg, UNK
     Route: 048
     Dates: start: 20110204
  3. MAGMITT [Concomitant]
     Dosage: 1320 mg, UNK
     Route: 048
     Dates: start: 20110224
  4. DEPAS [Concomitant]
     Dosage: 1 mg, UNK
     Route: 048
     Dates: start: 20110204
  5. TAMSULOSIN HYDROCHLORIDE [Concomitant]
     Dosage: 0.2 mg, UNK
     Route: 048
     Dates: start: 20110204
  6. ALOSENN [Concomitant]
     Dosage: 1.5 mg, UNK
     Dates: start: 20110421
  7. MYSLEE [Concomitant]
     Dosage: UNK UKN, UNK
     Route: 048
     Dates: start: 20110721

REACTIONS (2)
  - Hyponatraemia [Recovering/Resolving]
  - Blood chloride decreased [Unknown]
